FAERS Safety Report 4885094-1 (Version None)
Quarter: 2006Q1

REPORT INFORMATION
  Report Type: 
  Country: None (occurrence: None)
  Receive Date: 20060117
  Receipt Date: 20060103
  Transmission Date: 20060701
  Serious: Yes (Hospitalization, Other)
  Sender: FDA-Public Use
  Company Number: 2006005663

PATIENT
  Sex: Male

DRUGS (4)
  1. ZOLOFT [Suspect]
     Indication: DEPRESSION
  2. LITHIUM CARBONATE [Suspect]
     Indication: DEPRESSION
  3. PHENYTOIN SODIUM [Suspect]
     Indication: ILL-DEFINED DISORDER
  4. PHENOBARBITAL TAB [Concomitant]

REACTIONS (6)
  - ALCOHOL USE [None]
  - CONVULSION [None]
  - IRRITABILITY [None]
  - NEUTROPENIA [None]
  - TREATMENT NONCOMPLIANCE [None]
  - WHITE BLOOD CELL COUNT DECREASED [None]
